FAERS Safety Report 7214095-3 (Version None)
Quarter: 2011Q1

REPORT INFORMATION
  Report Type: 
  Country: None (occurrence: None)
  Receive Date: 20110107
  Receipt Date: 20110106
  Transmission Date: 20110831
  Serious: Yes (Hospitalization)
  Sender: FDA-Public Use
  Company Number: US-AMGEN-USASP2010009846

PATIENT

DRUGS (3)
  1. NPLATE [Suspect]
     Indication: IDIOPATHIC THROMBOCYTOPENIC PURPURA
     Dosage: 450 A?G, QWK
     Route: 058
     Dates: start: 20100702
  2. SYNTHROID [Concomitant]
     Dosage: UNK
     Dates: start: 20100601
  3. PREDNISONE [Concomitant]
     Dosage: UNK
     Dates: start: 20100601

REACTIONS (2)
  - PLEURAL EFFUSION [None]
  - HIP FRACTURE [None]
